FAERS Safety Report 7553017-2 (Version None)
Quarter: 2011Q2

REPORT INFORMATION
  Report Type: 
  Country: None (occurrence: None)
  Receive Date: 20110616
  Receipt Date: 20110613
  Transmission Date: 20111010
  Serious: Yes (Death, Other)
  Sender: FDA-Public Use
  Company Number: US-CELGENEUS-163-20785-11052305

PATIENT
  Sex: Female

DRUGS (6)
  1. FLORINEF [Concomitant]
     Dosage: 10 MILLIGRAM
     Route: 048
  2. THALOMID [Suspect]
     Dosage: 50 MILLIGRAM
     Route: 048
     Dates: start: 20091001
  3. THALOMID [Suspect]
     Dosage: 50 MILLIGRAM
     Route: 048
     Dates: start: 20110201, end: 20110101
  4. THALOMID [Suspect]
     Indication: MULTIPLE MYELOMA
     Dosage: 200 MILLIGRAM
     Route: 048
     Dates: start: 20020501, end: 20020101
  5. VELCADE [Concomitant]
     Route: 051
     Dates: end: 20110322
  6. THALOMID [Suspect]
     Dosage: 100-50MG
     Route: 048
     Dates: start: 20060701

REACTIONS (2)
  - MULTIPLE MYELOMA [None]
  - DEEP VEIN THROMBOSIS [None]
